FAERS Safety Report 7516681-X (Version None)
Quarter: 2011Q2

REPORT INFORMATION
  Report Type: 
  Country: None (occurrence: None)
  Receive Date: 20110601
  Receipt Date: 20110531
  Transmission Date: 20111010
  Serious: Yes (Life-Threatening, Hospitalization, Other)
  Sender: FDA-Public Use
  Company Number: JP-SANOFI-AVENTIS-2011SA013238

PATIENT
  Age: 71 Year
  Sex: Female
  Weight: 43.9 kg

DRUGS (6)
  1. FLUOROURACIL [Suspect]
     Indication: NASAL CAVITY CANCER
     Dosage: 250 MG/5 ML
     Route: 041
     Dates: start: 20110212, end: 20110216
  2. DECADRON [Suspect]
     Indication: NASAL CAVITY CANCER
     Route: 041
     Dates: start: 20110212, end: 20110212
  3. GRANISETRON HCL [Suspect]
     Indication: NASAL CAVITY CANCER
     Route: 041
     Dates: start: 20110212, end: 20110212
  4. CISPLATIN [Suspect]
     Indication: NASAL CAVITY CANCER
     Dosage: 50 MG/100 ML
     Route: 041
     Dates: start: 20110212, end: 20110212
  5. TAXOTERE [Suspect]
     Indication: NASAL CAVITY CANCER
     Route: 041
     Dates: start: 20110212, end: 20110212
  6. CISPLATIN [Suspect]
     Dosage: 25 MG/50 ML
     Route: 041
     Dates: start: 20110212, end: 20110212

REACTIONS (7)
  - INAPPROPRIATE ANTIDIURETIC HORMONE SECRETION [None]
  - HYPONATRAEMIA [None]
  - PLATELET COUNT DECREASED [None]
  - WHITE BLOOD CELL COUNT DECREASED [None]
  - VOMITING [None]
  - SOMNOLENCE [None]
  - DECREASED APPETITE [None]
